FAERS Safety Report 8807872 (Version 1)
Quarter: 2012Q4

REPORT INFORMATION
  Report Type: Report from Study
  Country: DE (occurrence: DE)
  Receive Date: 20120925
  Receipt Date: 20120925
  Transmission Date: 20130627
  Serious: Yes (Hospitalization)
  Sender: FDA-Public Use
  Company Number: DE-UCBSA-067038

PATIENT
  Sex: Female

DRUGS (3)
  1. CIMZIA [Suspect]
     Indication: RHEUMATOID ARTHRITIS
     Dosage: 1600 MG UNTIL MAR/2012
     Route: 058
     Dates: start: 201110, end: 20120218
  2. URBASON [Concomitant]
     Dosage: 8MG
  3. PANTAZOL [Concomitant]
     Dosage: 40 MG

REACTIONS (1)
  - Diverticulitis [Recovered/Resolved]
